FAERS Safety Report 8537420-X (Version None)
Quarter: 2012Q3

REPORT INFORMATION
  Report Type: 
  Country: None (occurrence: None)
  Receive Date: 20120725
  Receipt Date: 20120301
  Transmission Date: 20120928
  Serious: No
  Sender: FDA-Public Use
  Company Number: US-MYLANLABS-2012S1004977

PATIENT

DRUGS (1)
  1. GLYBURIDE [Suspect]

REACTIONS (2)
  - VOMITING [None]
  - ABDOMINAL DISTENSION [None]
